FAERS Safety Report 5302928-7 (Version None)
Quarter: 2007Q2

REPORT INFORMATION
  Report Type: 
  Country: None (occurrence: None)
  Receive Date: 20070420
  Receipt Date: 20070418
  Transmission Date: 20071010
  Serious: Yes (Death)
  Sender: FDA-Public Use
  Company Number: PHNR2007AU00995

PATIENT

DRUGS (1)
  1. KRIPTON [Suspect]

REACTIONS (1)
  - MENINGITIS [None]
